FAERS Safety Report 6716478-4 (Version None)
Quarter: 2010Q2

REPORT INFORMATION
  Report Type: 
  Country: None (occurrence: None)
  Receive Date: 20100507
  Receipt Date: 20100423
  Transmission Date: 20101027
  Serious: Yes (Other)
  Sender: FDA-Public Use
  Company Number: PHEH2006US11227

PATIENT
  Age: 54 Year
  Sex: Female
  Weight: 77.551 kg

DRUGS (12)
  1. ZOMETA [Suspect]
     Dosage: 4MG IV EVERY 4 WEEKS
     Route: 042
     Dates: end: 20050926
  2. EFFEXOR [Concomitant]
     Dosage: 75 MG, TID
  3. VERAPAMIL [Concomitant]
     Indication: HYPERTENSION
     Dosage: 240 MG, QD
  4. LEXAPRO [Concomitant]
  5. PERCOCET [Concomitant]
  6. PRILOSEC [Concomitant]
  7. DICLOFENAC [Concomitant]
  8. NORTRIPTYLINE HCL [Concomitant]
  9. WELLBUTRIN [Concomitant]
  10. KLONOPIN [Concomitant]
  11. ATIVAN [Concomitant]
  12. VITAMIN B-12 [Concomitant]

REACTIONS (39)
  - ANXIETY [None]
  - ARTHRALGIA [None]
  - ARTHRITIS [None]
  - BARRETT'S OESOPHAGUS [None]
  - BONE DISORDER [None]
  - CHRONIC OBSTRUCTIVE PULMONARY DISEASE [None]
  - DECREASED INTEREST [None]
  - DENTAL CARE [None]
  - EAR PAIN [None]
  - ERYTHEMA [None]
  - FACIAL PAIN [None]
  - GENERAL PHYSICAL HEALTH DETERIORATION [None]
  - GINGIVAL DISORDER [None]
  - GINGIVAL OPERATION [None]
  - HYPOAESTHESIA [None]
  - IMPAIRED WORK ABILITY [None]
  - JAW OPERATION [None]
  - LYMPHADENOPATHY [None]
  - MUCOSAL ULCERATION [None]
  - NEUROPATHY PERIPHERAL [None]
  - ORAL DISORDER [None]
  - ORAL INFECTION [None]
  - OSTEOMYELITIS [None]
  - OSTEONECROSIS OF JAW [None]
  - OSTEOSCLEROSIS [None]
  - PAIN [None]
  - PERIODONTAL DESTRUCTION [None]
  - PERIODONTITIS [None]
  - RASH [None]
  - RESTLESS LEGS SYNDROME [None]
  - SLEEP APNOEA SYNDROME [None]
  - SWELLING [None]
  - TENDERNESS [None]
  - TOOTH ABSCESS [None]
  - TOOTH DEPOSIT [None]
  - TOOTH DISORDER [None]
  - TOOTH EXTRACTION [None]
  - VITAMIN B12 DEFICIENCY [None]
  - WOUND DEHISCENCE [None]
